FAERS Safety Report 25037592 (Version 1)
Quarter: 2025Q1

REPORT INFORMATION
  Report Type: Report from Study
  Country: DE (occurrence: DE)
  Receive Date: 20250304
  Receipt Date: 20250304
  Transmission Date: 20250408
  Serious: Yes (Hospitalization, Other)
  Sender: ALEXION PHARMACEUTICALS
  Company Number: DE-ASTRAZENECA-202502GLO022014DE

PATIENT
  Age: 78 Year
  Weight: 70 kg

DRUGS (10)
  1. DURVALUMAB [Suspect]
     Active Substance: DURVALUMAB
     Indication: Hepatocellular carcinoma
  2. DURVALUMAB [Suspect]
     Active Substance: DURVALUMAB
  3. CISPLATIN [Suspect]
     Active Substance: CISPLATIN
     Indication: Hepatocellular carcinoma
  4. CISPLATIN [Suspect]
     Active Substance: CISPLATIN
  5. CISPLATIN [Suspect]
     Active Substance: CISPLATIN
  6. CISPLATIN [Suspect]
     Active Substance: CISPLATIN
  7. GEMCITABINE [Suspect]
     Active Substance: GEMCITABINE
     Indication: Hepatocellular carcinoma
  8. GEMCITABINE [Suspect]
     Active Substance: GEMCITABINE
  9. GEMCITABINE [Suspect]
     Active Substance: GEMCITABINE
  10. GEMCITABINE [Suspect]
     Active Substance: GEMCITABINE

REACTIONS (2)
  - Liver abscess [Recovered/Resolved]
  - Bronchitis [Recovered/Resolved]
